FAERS Safety Report 8821155 (Version 1)
Quarter: 2012Q4

REPORT INFORMATION
  Report Type: 
  Country: US (occurrence: US)
  Receive Date: 20121002
  Receipt Date: 20121002
  Transmission Date: 20130627
  Serious: No
  Sender: FDA-Public Use
  Company Number: US-BRISTOL-MYERS SQUIBB COMPANY-16685521

PATIENT
  Age: 12 Year
  Sex: Female

DRUGS (7)
  1. BUSPAR [Suspect]
  2. ABILIFY [Suspect]
     Indication: SCHIZOPHRENIA
     Dosage: 1/2tab at bedtime.
     Dates: start: 2005
  3. ABILIFY [Suspect]
     Indication: ANXIETY
     Dosage: 1/2tab at bedtime.
     Dates: start: 2005
  4. ABILIFY [Suspect]
     Indication: DEPRESSION
     Dosage: 1/2tab at bedtime.
     Dates: start: 2005
  5. TRILEPTAL [Suspect]
     Dosage: 1/2tab
  6. TENEX [Suspect]
  7. CLONAZEPAM [Concomitant]
     Dosage: 0.5mg 1 tab at bedtime for 2-3days.

REACTIONS (16)
  - Abnormal behaviour [Unknown]
  - Breast pain [Unknown]
  - Cough [Unknown]
  - Oropharyngeal pain [Unknown]
  - Fall [Unknown]
  - Crying [Unknown]
  - Hypersomnia [Unknown]
  - Depressed mood [Unknown]
  - Ear pain [Unknown]
  - Headache [Unknown]
  - Decreased appetite [Unknown]
  - Nausea [Unknown]
  - Fatigue [Unknown]
  - Anger [Unknown]
  - Back pain [Unknown]
  - Pain in extremity [Unknown]
